FAERS Safety Report 18774543 (Version 2)
Quarter: 2021Q2

REPORT INFORMATION
  Report Type: Spontaneous
  Country: JP (occurrence: JP)
  Receive Date: 20210122
  Receipt Date: 20210406
  Transmission Date: 20210717
  Serious: Yes (Death, Other)
  Sender: FDA-Public Use
  Company Number: JP-OTSUKA-2021_001393

PATIENT
  Age: 53 Year
  Sex: Male

DRUGS (12)
  1. DORIPENEM. [Concomitant]
     Active Substance: DORIPENEM
     Indication: FEBRILE NEUTROPENIA
     Dosage: UNK
     Route: 065
  2. THROMBOMODULIN ALFA [Concomitant]
     Active Substance: THROMBOMODULIN ALFA
     Indication: VENOOCCLUSIVE LIVER DISEASE
     Dosage: UNK
     Route: 065
  3. VANCOMYCIN [Concomitant]
     Active Substance: VANCOMYCIN
     Indication: INFECTION
     Dosage: UNK
     Route: 065
  4. BUSULFEX [Suspect]
     Active Substance: BUSULFAN
     Indication: ALLOGENIC STEM CELL TRANSPLANTATION
     Dosage: 3.2 MG/KG, UNK
     Route: 042
  5. MELPHALAN. [Suspect]
     Active Substance: MELPHALAN
     Indication: ALLOGENIC STEM CELL TRANSPLANTATION
     Dosage: 40 MG/M2, UNK
     Route: 065
  6. VORICONAZOLE. [Concomitant]
     Active Substance: VORICONAZOLE
     Indication: FUNGAL INFECTION
     Dosage: UNK
     Route: 065
  7. FLUDARABINE PHOSPHATE. [Suspect]
     Active Substance: FLUDARABINE PHOSPHATE
     Indication: ALLOGENIC STEM CELL TRANSPLANTATION
     Dosage: 21 MG/M2, UNK
     Route: 065
  8. METHOTREXATE. [Suspect]
     Active Substance: METHOTREXATE
     Dosage: 7 MG/M2, UNK
     Route: 065
  9. AMPHOTERICIN B. [Suspect]
     Active Substance: AMPHOTERICIN B
     Indication: FUNGAL INFECTION
     Dosage: 5 MG/KG, UNK
     Route: 065
  10. TACROLIMUS MONOHYDRATE [Suspect]
     Active Substance: TACROLIMUS
     Indication: PROPHYLAXIS AGAINST GRAFT VERSUS HOST DISEASE
     Dosage: UNK
     Route: 042
  11. METHOTREXATE. [Suspect]
     Active Substance: METHOTREXATE
     Indication: PROPHYLAXIS AGAINST GRAFT VERSUS HOST DISEASE
     Dosage: 10 MG/M2, DAY 1
     Route: 065
  12. CASPOFUNGIN ACETATE. [Concomitant]
     Active Substance: CASPOFUNGIN ACETATE
     Indication: FUNGAL INFECTION
     Dosage: UNK
     Route: 065

REACTIONS (6)
  - Pancytopenia [Unknown]
  - Fusarium infection [Fatal]
  - Organ failure [Fatal]
  - Haemophagocytic lymphohistiocytosis [Fatal]
  - Septic shock [Unknown]
  - Venoocclusive liver disease [Unknown]
